FAERS Safety Report 23471006 (Version 3)
Quarter: 2025Q4

REPORT INFORMATION
  Report Type: Spontaneous
  Country: BR (occurrence: BR)
  Receive Date: 20240202
  Receipt Date: 20251216
  Transmission Date: 20260117
  Serious: Yes (Other)
  Sender: SANDOZ
  Company Number: BR-002147023-NVSC2022BR257487

PATIENT
  Age: 43 Year
  Sex: Female
  Weight: 88.25 kg

DRUGS (16)
  1. KISQALI [Suspect]
     Active Substance: RIBOCICLIB SUCCINATE
     Indication: Breast cancer metastatic
     Dosage: UNK
     Route: 065
  2. KISQALI [Suspect]
     Active Substance: RIBOCICLIB SUCCINATE
     Dosage: 1 DF, QD
     Route: 065
  3. KISQALI [Suspect]
     Active Substance: RIBOCICLIB SUCCINATE
     Dosage: 2 DF, QD
     Route: 065
  4. KISQALI [Suspect]
     Active Substance: RIBOCICLIB SUCCINATE
     Dosage: 200 MG (TABLET (200 MG) ON ODD NUMBERED DAYS AND 2 TABLETS (400 MG)  ON EVEN NUMBERED DAYS)
     Route: 048
  5. KISQALI [Suspect]
     Active Substance: RIBOCICLIB SUCCINATE
     Indication: Breast cancer
     Dosage: 400 MG, QD
     Route: 048
     Dates: start: 20200925, end: 20221114
  6. KISQALI [Suspect]
     Active Substance: RIBOCICLIB SUCCINATE
     Dosage: 400/200MG
     Route: 048
     Dates: start: 2020
  7. LETROZOLE [Suspect]
     Active Substance: LETROZOLE
     Indication: Breast cancer
     Dosage: 2.5 MG, QD (ONCE PER DAY CONTINUOUS USE)
     Route: 048
     Dates: start: 20200925
  8. LETROZOLE [Suspect]
     Active Substance: LETROZOLE
     Indication: Breast cancer metastatic
  9. PANTOPRAZOLE [Suspect]
     Active Substance: PANTOPRAZOLE
     Indication: Gastrooesophageal reflux disease
     Dosage: 40 MG, QD (ONCE PER DAY CONTINUOUS USE)
     Route: 065
     Dates: start: 202208
  10. ROSUVASTATIN [Suspect]
     Active Substance: ROSUVASTATIN
     Indication: Dyslipidaemia
     Dosage: 20 MG, QD (ONCE PER DAY CONTINUOUS USE)
     Route: 065
     Dates: start: 20201217
  11. VENLAFAXINE HYDROCHLORIDE [Concomitant]
     Active Substance: VENLAFAXINE HYDROCHLORIDE
     Indication: Anxiety
     Dosage: 75 MG, QD (ONCE PER DAY CONTINUOUS USE)
     Route: 048
     Dates: start: 202111
  12. MOUNJARO [Concomitant]
     Active Substance: TIRZEPATIDE
     Indication: Weight decreased
     Dosage: 5 MG  (SYRINGE) (INJECTABLE)
     Route: 065
     Dates: start: 2023
  13. OXYBUTYNIN CHLORIDE [Concomitant]
     Active Substance: OXYBUTYNIN CHLORIDE
     Indication: Hot flush
     Dosage: 5 MG, QD (ONCE PER DAY CONTINUOUS USE)
     Route: 065
     Dates: start: 20220224
  14. TESTOSTERONE [Concomitant]
     Active Substance: TESTOSTERONE
     Indication: Hot flush
     Dosage: 4 MG/ML MILLIGRAM PER MILLILITRE (CREAM) (TOPICAL  USE
     Route: 065
     Dates: start: 2024
  15. VENLAFAXINE [Concomitant]
     Active Substance: VENLAFAXINE HYDROCHLORIDE
     Indication: Depression
     Dosage: 75 MG
     Route: 048
     Dates: start: 2024
  16. WELLBUTRIN XL [Concomitant]
     Active Substance: BUPROPION HYDROCHLORIDE
     Indication: Anxiety
     Dosage: 150 MG
     Route: 048
     Dates: start: 2024

REACTIONS (6)
  - White blood cell count increased [Recovered/Resolved]
  - Neutropenia [Recovered/Resolved]
  - Drug intolerance [Not Recovered/Not Resolved]
  - Decreased immune responsiveness [Not Recovered/Not Resolved]
  - Inappropriate schedule of product administration [Unknown]
  - Off label use [Unknown]

NARRATIVE: CASE EVENT DATE: 20221109
